FAERS Safety Report 9220944 (Version 1)
Quarter: 2013Q2

REPORT INFORMATION
  Report Type: Spontaneous
  Country: GB (occurrence: GB)
  Receive Date: 20130409
  Receipt Date: 20130409
  Transmission Date: 20140414
  Serious: Yes (Other)
  Sender: FDA-Public Use
  Company Number: GB-GLAXOSMITHKLINE-B0879789A

PATIENT
  Age: 59 Year
  Sex: Female
  Weight: 85.72 kg

DRUGS (4)
  1. SEREVENT [Suspect]
     Indication: ASTHMA
     Route: 055
     Dates: start: 20000101, end: 20100101
  2. VENTOLIN [Suspect]
     Indication: ASTHMA
     Route: 055
     Dates: start: 20130316
  3. BECLOMETASONE DIPROPIONATE W/FORMOTEROL FUMAR [Suspect]
     Indication: ASTHMA
     Route: 055
     Dates: start: 20121112, end: 20121211
  4. KEFLEX [Concomitant]

REACTIONS (6)
  - Loss of consciousness [Not Recovered/Not Resolved]
  - Dizziness [Not Recovered/Not Resolved]
  - Hypersensitivity [Not Recovered/Not Resolved]
  - Headache [Not Recovered/Not Resolved]
  - Dizziness [Not Recovered/Not Resolved]
  - Hallucination [Not Recovered/Not Resolved]
